FAERS Safety Report 17527278 (Version 1)
Quarter: 2020Q1

REPORT INFORMATION
  Report Type: Spontaneous
  Country: US (occurrence: US)
  Receive Date: 20200311
  Receipt Date: 20200311
  Transmission Date: 20200409
  Serious: No
  Sender: FDA-Public Use
  Company Number: US-GLAXOSMITHKLINE-US2020041696

PATIENT
  Sex: Female

DRUGS (1)
  1. DICLOFENAC SODIUM GEL [Suspect]
     Active Substance: DICLOFENAC SODIUM
     Indication: PAIN
     Dosage: UNK
     Dates: start: 20200217

REACTIONS (4)
  - Back pain [Unknown]
  - Adverse drug reaction [Unknown]
  - Abdominal pain upper [Unknown]
  - Chest pain [Unknown]

NARRATIVE: CASE EVENT DATE: 20200217
